FAERS Safety Report 13910553 (Version 1)
Quarter: 2017Q3

REPORT INFORMATION
  Report Type: Spontaneous
  Country: US (occurrence: None)
  Receive Date: 20170822
  Receipt Date: 20170822
  Transmission Date: 20171127
  Serious: Yes (Hospitalization)
  Sender: FDA-Public Use
  Company Number: None

PATIENT
  Age: 68 Year
  Sex: Male
  Weight: 92.99 kg

DRUGS (2)
  1. MULTIVITAMIN [Concomitant]
     Active Substance: VITAMINS
  2. LETAIRIS [Suspect]
     Active Substance: AMBRISENTAN
     Indication: PULMONARY HYPERTENSION
     Dosage: ONE PILL ONCE A DAY, MOUTH
     Route: 048
     Dates: start: 20170110, end: 20170414

REACTIONS (4)
  - Dyspnoea [None]
  - Fluid retention [None]
  - Weight decreased [None]
  - Malaise [None]

NARRATIVE: CASE EVENT DATE: 20170412
